FAERS Safety Report 8139517-5 (Version None)
Quarter: 2012Q1

REPORT INFORMATION
  Report Type: 
  Country: None (occurrence: None)
  Receive Date: 20120215
  Receipt Date: 20120209
  Transmission Date: 20120608
  Serious: Yes (Other)
  Sender: FDA-Public Use
  Company Number: CA-ABBOTT-12P-028-0903551-00

PATIENT
  Sex: Female

DRUGS (1)
  1. HUMIRA [Suspect]
     Indication: COLITIS ULCERATIVE
     Dosage: UNSPECIFIED
     Dates: start: 20101104, end: 20111001

REACTIONS (4)
  - FUNGAL INFECTION [None]
  - NASOPHARYNGITIS [None]
  - ENDODONTIC PROCEDURE [None]
  - MALAISE [None]
